FAERS Safety Report 11913120 (Version 4)
Quarter: 2016Q2

REPORT INFORMATION
  Report Type: Spontaneous
  Country: FR (occurrence: FR)
  Receive Date: 20160113
  Receipt Date: 20160602
  Transmission Date: 20160815
  Serious: Yes (Hospitalization)
  Sender: FDA-Public Use
  Company Number: FR-JNJFOC-20160104014

PATIENT
  Age: 60 Year
  Sex: Female

DRUGS (5)
  1. OFLOXACINE [Suspect]
     Active Substance: OFLOXACIN
     Indication: URINARY TRACT INFECTION
     Route: 048
     Dates: start: 20151122, end: 20151128
  2. CLARITYNE [Concomitant]
     Active Substance: LORATADINE
     Route: 065
  3. XYZALL [Concomitant]
     Active Substance: LEVOCETIRIZINE DIHYDROCHLORIDE
     Route: 065
  4. ZOLPIDEM [Concomitant]
     Active Substance: ZOLPIDEM\ZOLPIDEM TARTRATE
     Route: 065
  5. CAELYX [Suspect]
     Active Substance: DOXORUBICIN HYDROCHLORIDE
     Indication: OVARIAN CANCER
     Route: 042
     Dates: start: 20150923, end: 20151118

REACTIONS (6)
  - Urinary tract infection [Unknown]
  - Product quality issue [None]
  - Drug ineffective [None]
  - Toxic skin eruption [Recovered/Resolved with Sequelae]
  - Drug ineffective [Unknown]
  - Leukopenia [Recovered/Resolved]

NARRATIVE: CASE EVENT DATE: 20151121
